FAERS Safety Report 6335805-3 (Version None)
Quarter: 2009Q3

REPORT INFORMATION
  Report Type: 
  Country: None (occurrence: None)
  Receive Date: 20090828
  Receipt Date: 20090813
  Transmission Date: 20100115
  Serious: Yes (Other)
  Sender: FDA-Public Use
  Company Number: MC200900279

PATIENT

DRUGS (1)
  1. CLEVIPREX              (CLEVIDIPINE BUTYRATE) EMULSION FOR INFUSION [Suspect]
     Indication: POSTOPERATIVE CARE
     Dosage: MG, HR, INTRAVENOUS
     Route: 042
     Dates: start: 20090101

REACTIONS (1)
  - ILEUS [None]
